FAERS Safety Report 8386927-7 (Version None)
Quarter: 2012Q2

REPORT INFORMATION
  Report Type: 
  Country: None (occurrence: None)
  Receive Date: 20120525
  Receipt Date: 20120515
  Transmission Date: 20120825
  Serious: Yes (Hospitalization, Disabling, Other)
  Sender: FDA-Public Use
  Company Number: US-MYLANLABS-2009AC000071

PATIENT
  Sex: Female
  Weight: 90.72 kg

DRUGS (29)
  1. DIGOXIN [Suspect]
     Indication: PRODUCT USED FOR UNKNOWN INDICATION
     Route: 048
     Dates: start: 20071220, end: 20080107
  2. COREG [Concomitant]
  3. HYDROCHLOROTHIAZIDE [Concomitant]
  4. WARFARIN SODIUM [Concomitant]
  5. KEFLEX [Concomitant]
     Dosage: FOR 10 DAYS
  6. CIPRODEX /00697202/ [Concomitant]
  7. PROPYL-THIOURACIL [Concomitant]
  8. NEURONTIN [Concomitant]
  9. CARVEDILOL [Concomitant]
  10. MAGNESIUM OXIDE [Concomitant]
  11. MEDROL [Concomitant]
  12. MECLIZINE [Concomitant]
  13. POTASSIUM CHLORIDE [Concomitant]
  14. TAGAMET [Concomitant]
  15. HYDROCODONE BITARTRATE [Concomitant]
  16. CIPROFLOXACIN [Concomitant]
  17. SPIRONOLACTONE [Concomitant]
  18. GLIPIZIDE [Concomitant]
  19. LISINOPRIL [Concomitant]
  20. COUMADIN [Concomitant]
  21. ACETAMINOPHEN W/ PROPOXYPHENE HCL [Concomitant]
  22. HYDROCHLOROTHIAZIDE [Concomitant]
  23. AUGMENTIN '125' [Concomitant]
     Dosage: FOR 10 DAYS
  24. ZANTAC [Concomitant]
  25. DARVOCET-N 100 [Concomitant]
  26. TYLENOL [Concomitant]
  27. PROPRANOLOL [Concomitant]
  28. PREMPRO [Concomitant]
  29. TOPICORT /00028604/ [Concomitant]

REACTIONS (83)
  - ANHEDONIA [None]
  - AORTIC VALVE INCOMPETENCE [None]
  - CARDIOMYOPATHY [None]
  - CERUMEN IMPACTION [None]
  - COUGH [None]
  - FOOT DEFORMITY [None]
  - HYPOAESTHESIA [None]
  - OBESITY [None]
  - PLEURITIC PAIN [None]
  - VERTIGO [None]
  - ATRIAL FIBRILLATION [None]
  - LEFT VENTRICULAR HYPERTROPHY [None]
  - CARDIAC ANEURYSM [None]
  - DYSPNOEA EXERTIONAL [None]
  - BUNDLE BRANCH BLOCK LEFT [None]
  - ECHOCARDIOGRAM ABNORMAL [None]
  - EXCORIATION [None]
  - RALES [None]
  - RHONCHI [None]
  - WHEEZING [None]
  - X-RAY ABNORMAL [None]
  - ACTIVITIES OF DAILY LIVING IMPAIRED [None]
  - ASTHENIA [None]
  - MITRAL VALVE INCOMPETENCE [None]
  - PALPITATIONS [None]
  - HYPERTENSION [None]
  - HYPERLIPIDAEMIA [None]
  - OSTEOARTHRITIS [None]
  - ARRHYTHMIA [None]
  - HEART RATE IRREGULAR [None]
  - ECONOMIC PROBLEM [None]
  - TOXICITY TO VARIOUS AGENTS [None]
  - CARDIAC FIBRILLATION [None]
  - CARDIAC MURMUR [None]
  - GASTRIC ULCER [None]
  - BRADYCARDIA [None]
  - ELECTROCARDIOGRAM ABNORMAL [None]
  - FATIGUE [None]
  - PAIN [None]
  - EMOTIONAL DISTRESS [None]
  - LOSS OF EMPLOYMENT [None]
  - HYPOMAGNESAEMIA [None]
  - ACTIVATED PARTIAL THROMBOPLASTIN TIME PROLONGED [None]
  - ELECTROCARDIOGRAM ST SEGMENT DEPRESSION [None]
  - VENTRICULAR DYSKINESIA [None]
  - HAEMORRHAGE [None]
  - ERYTHEMA [None]
  - GASTRITIS [None]
  - OTITIS EXTERNA [None]
  - SINUS TACHYCARDIA [None]
  - TOE AMPUTATION [None]
  - INJURY [None]
  - SOCIAL AVOIDANT BEHAVIOUR [None]
  - ABDOMINAL PAIN [None]
  - INTERNATIONAL NORMALISED RATIO INCREASED [None]
  - LEFT VENTRICULAR DYSFUNCTION [None]
  - EJECTION FRACTION DECREASED [None]
  - CELLULITIS [None]
  - GASTROOESOPHAGEAL REFLUX DISEASE [None]
  - NAUSEA [None]
  - EAR HAEMORRHAGE [None]
  - EAR PAIN [None]
  - MUSCLE SPASMS [None]
  - OTITIS MEDIA [None]
  - PARAESTHESIA [None]
  - ILL-DEFINED DISORDER [None]
  - MYOCARDIAL ISCHAEMIA [None]
  - AORTIC VALVE SCLEROSIS [None]
  - DIABETES MELLITUS [None]
  - NEUROPATHY PERIPHERAL [None]
  - ABDOMINAL TENDERNESS [None]
  - TYPE 2 DIABETES MELLITUS [None]
  - PROTHROMBIN LEVEL INCREASED [None]
  - ELECTROCARDIOGRAM T WAVE BIPHASIC [None]
  - DIARRHOEA [None]
  - MUSCULOSKELETAL DISCOMFORT [None]
  - INTERMITTENT CLAUDICATION [None]
  - BLOOD GLUCOSE FLUCTUATION [None]
  - CHEST PAIN [None]
  - DIABETIC NEUROPATHY [None]
  - LABORATORY TEST ABNORMAL [None]
  - NASAL CONGESTION [None]
  - TYMPANIC MEMBRANE HYPERAEMIA [None]
